FAERS Safety Report 7199881-0 (Version None)
Quarter: 2010Q4

REPORT INFORMATION
  Report Type: 
  Country: None (occurrence: None)
  Receive Date: 20101228
  Receipt Date: 20101221
  Transmission Date: 20110411
  Serious: Yes (Other)
  Sender: FDA-Public Use
  Company Number: US-PURDUE-USA-2010-0054993

PATIENT
  Sex: Female

DRUGS (1)
  1. OXYCONTIN [Suspect]
     Indication: PAIN
     Dosage: 60 MG, TID
     Dates: start: 20101001

REACTIONS (9)
  - ANXIETY [None]
  - DRUG INEFFECTIVE [None]
  - INADEQUATE ANALGESIA [None]
  - INTENTIONAL DRUG MISUSE [None]
  - PANIC ATTACK [None]
  - PRODUCT FORMULATION ISSUE [None]
  - SUICIDAL IDEATION [None]
  - SWOLLEN TONGUE [None]
  - VOMITING [None]
